FAERS Safety Report 16671395 (Version 1)
Quarter: 2019Q3

REPORT INFORMATION
  Report Type: Spontaneous
  Country: US (occurrence: US)
  Receive Date: 20190806
  Receipt Date: 20190806
  Transmission Date: 20191004
  Serious: No
  Sender: FDA-Public Use
  Company Number: US-GLENMARK PHARMACEUTICALS-2019GMK042108

PATIENT

DRUGS (2)
  1. TACROZ OINTMENT 0.1% [Suspect]
     Active Substance: TACROLIMUS
     Indication: SEBORRHOEIC DERMATITIS
  2. TACROZ OINTMENT 0.1% [Suspect]
     Active Substance: TACROLIMUS
     Indication: ROSACEA
     Dosage: UNK, 2-3 TIMES A DAY
     Route: 061
     Dates: start: 20190423, end: 20190710

REACTIONS (5)
  - Condition aggravated [Recovering/Resolving]
  - Product dose omission [Unknown]
  - Rosacea [Recovered/Resolved]
  - Seborrhoeic dermatitis [Recovering/Resolving]
  - Product use in unapproved indication [Unknown]

NARRATIVE: CASE EVENT DATE: 20190423
